FAERS Safety Report 8299602-4 (Version None)
Quarter: 2012Q2

REPORT INFORMATION
  Report Type: 
  Country: None (occurrence: None)
  Receive Date: 20120419
  Receipt Date: 20120413
  Transmission Date: 20120825
  Serious: Yes (Other)
  Sender: FDA-Public Use
  Company Number: US-GLAXOSMITHKLINE-A0970548A

PATIENT
  Age: 45 Year
  Sex: Male

DRUGS (7)
  1. LAMICTAL XR [Suspect]
     Indication: CONVULSION
     Route: 048
  2. LAMICTAL [Concomitant]
     Dates: start: 20070101
  3. TEMAZEPAM [Concomitant]
  4. MULTI-VITAMIN [Concomitant]
  5. GLUCOSAMINE [Concomitant]
  6. LAMOTRGINE [Suspect]
     Indication: CONVULSION
     Dosage: 150MG TWICE PER DAY
     Route: 048
     Dates: start: 20120101
  7. ZINC SULFATE [Concomitant]

REACTIONS (3)
  - STARING [None]
  - CONVULSION [None]
  - HEADACHE [None]
